FAERS Safety Report 10262324 (Version 1)
Quarter: 2014Q2

REPORT INFORMATION
  Report Type: Spontaneous
  Country: IT (occurrence: IT)
  Receive Date: 20140626
  Receipt Date: 20140626
  Transmission Date: 20141212
  Serious: Yes (Hospitalization)
  Sender: FDA-Public Use
  Company Number: IT-BAYER-2014-094058

PATIENT
  Age: 42 Year
  Sex: Female

DRUGS (1)
  1. CIPROXIN [Suspect]
     Indication: CYSTITIS
     Dosage: 250 MG, ONCE
     Route: 048
     Dates: start: 20140317, end: 20140317

REACTIONS (2)
  - Choking [Recovered/Resolved]
  - Urticaria [Recovered/Resolved]
